FAERS Safety Report 7981161-4 (Version None)
Quarter: 2011Q4

REPORT INFORMATION
  Report Type: 
  Country: None (occurrence: None)
  Receive Date: 20111129
  Receipt Date: 20110218
  Transmission Date: 20120403
  Serious: Yes (Other)
  Sender: FDA-Public Use
  Company Number: PHHY2010US90668

PATIENT
  Age: 62 Year
  Sex: Female

DRUGS (4)
  1. FEXOFENADINE HCL [Concomitant]
  2. SIMVASTATIN [Concomitant]
  3. ALENDRONATE SODIUM [Concomitant]
  4. LAMISIL [Suspect]
     Indication: ONYCHOMYCOSIS
     Dosage: 250 MG, QD, ORAL
     Route: 048

REACTIONS (1)
  - RASH [None]
